FAERS Safety Report 7966576-2 (Version None)
Quarter: 2011Q4

REPORT INFORMATION
  Report Type: 
  Country: None (occurrence: None)
  Receive Date: 20111209
  Receipt Date: 20111202
  Transmission Date: 20120403
  Serious: Yes (Other)
  Sender: FDA-Public Use
  Company Number: GB-ACCORD-011558

PATIENT
  Sex: Female

DRUGS (9)
  1. CINNARIZINE [Concomitant]
     Dosage: ON PRE-ADMISSION.
  2. FERROUS FUMARATE [Concomitant]
     Dosage: ON PRE-ADMISSION.
  3. ACETAMINOPHEN [Concomitant]
  4. ALENDRONIC ACID [Concomitant]
     Dosage: ON PRE-ADMISSION.
  5. ADCAL-D3 [Concomitant]
     Dosage: ON PRE-ADMISSION.
  6. FLUOXETINE [Concomitant]
  7. ALBUTEROL SULFATE AUTOHALER [Concomitant]
  8. SIMVASTATIN [Suspect]
     Indication: CEREBROVASCULAR ACCIDENT PROPHYLAXIS
     Route: 048
     Dates: start: 20111108, end: 20111110
  9. QVAR 40 [Concomitant]

REACTIONS (1)
  - AGGRESSION [None]
